FAERS Safety Report 8089544-1 (Version None)
Quarter: 2012Q1

REPORT INFORMATION
  Report Type: 
  Country: None (occurrence: None)
  Receive Date: 20120128
  Receipt Date: 20110616
  Transmission Date: 20120608
  Serious: No
  Sender: FDA-Public Use
  Company Number: US-ABBOTT-11P-163-0733212-00

PATIENT
  Age: 42 Year
  Sex: Male

DRUGS (3)
  1. NAPROXEN (ALEVE) [Concomitant]
     Indication: BACK PAIN
     Dates: start: 20100501
  2. HUMIRA [Suspect]
     Indication: PSORIASIS
     Dates: start: 20110505
  3. IBUPROFEN (ADVIL) [Concomitant]
     Indication: BACK PAIN
     Dates: start: 20100501

REACTIONS (4)
  - BLOOD GLUCOSE INCREASED [None]
  - DRY SKIN [None]
  - PRURITUS [None]
  - PSORIASIS [None]
